FAERS Safety Report 23737241 (Version 1)
Quarter: 2024Q2

REPORT INFORMATION
  Report Type: Spontaneous
  Country: JP (occurrence: JP)
  Receive Date: 20240412
  Receipt Date: 20240412
  Transmission Date: 20240716
  Serious: Yes (Other)
  Sender: FDA-Public Use
  Company Number: JP-UCBJ-CD202403022UCBPHAPROD

PATIENT
  Sex: Female

DRUGS (3)
  1. LEVETIRACETAM [Suspect]
     Active Substance: LEVETIRACETAM
     Indication: Product used for unknown indication
     Dosage: 250 MILLIGRAM, ONCE DAILY (QD)
     Route: 048
  2. LEVETIRACETAM [Suspect]
     Active Substance: LEVETIRACETAM
     Dosage: 2500 MILLIGRAM, ONCE DAILY (QD)
     Route: 048
     Dates: start: 20240331, end: 20240331
  3. FYCOMPA [Concomitant]
     Active Substance: PERAMPANEL
     Indication: Product used for unknown indication
     Dosage: UNK
     Route: 048

REACTIONS (14)
  - Haematemesis [Unknown]
  - Dizziness [Unknown]
  - Speech disorder [Unknown]
  - Tremor [Unknown]
  - Rash [Unknown]
  - Malaise [Unknown]
  - Feeling abnormal [Recovered/Resolved]
  - Oropharyngeal pain [Unknown]
  - Dry throat [Not Recovered/Not Resolved]
  - Throat irritation [Not Recovered/Not Resolved]
  - Gingival pain [Unknown]
  - Off label use [Unknown]
  - Prescribed underdose [Unknown]
  - Intentional overdose [Unknown]

NARRATIVE: CASE EVENT DATE: 20240331
